FAERS Safety Report 5017684-X (Version None)
Quarter: 2006Q2

REPORT INFORMATION
  Report Type: 
  Country: None (occurrence: None)
  Receive Date: 20060605
  Receipt Date: 20060504
  Transmission Date: 20061013
  Serious: Yes (Other)
  Sender: FDA-Public Use
  Company Number: PHEH2006US05900

PATIENT
  Age: 32 Year
  Sex: Female

DRUGS (1)
  1. LAMISIL [Suspect]
     Indication: NAIL TINEA
     Dosage: 250 MG, QD
     Route: 048
     Dates: start: 20060424, end: 20060503

REACTIONS (10)
  - CEREBROVASCULAR ACCIDENT [None]
  - EAR DISORDER [None]
  - FEAR [None]
  - MALAISE [None]
  - NASAL DISCOMFORT [None]
  - NUCLEAR MAGNETIC RESONANCE IMAGING BRAIN ABNORMAL [None]
  - OCULAR HYPERAEMIA [None]
  - OCULAR ICTERUS [None]
  - PANIC ATTACK [None]
  - VISION BLURRED [None]
